APPROVED DRUG PRODUCT: PREDNISONE
Active Ingredient: PREDNISONE
Strength: 10MG
Dosage Form/Route: TABLET;ORAL
Application: A211575 | Product #003 | TE Code: AB
Applicant: NOVITIUM PHARMA LLC
Approved: Nov 15, 2019 | RLD: No | RS: No | Type: RX